FAERS Safety Report 13487786 (Version 1)
Quarter: 2017Q2

REPORT INFORMATION
  Report Type: Spontaneous
  Country: US (occurrence: US)
  Receive Date: 20170426
  Receipt Date: 20170426
  Transmission Date: 20170830
  Serious: No
  Sender: FDA-Public Use
  Company Number: US-ALKERMES INC.-ALK-2016-001056

PATIENT
  Age: 52 Year
  Sex: Female

DRUGS (1)
  1. VIVITROL [Suspect]
     Active Substance: NALTREXONE
     Indication: ALCOHOLISM
     Dosage: 380 MG, QMO
     Route: 030
     Dates: start: 20160413

REACTIONS (6)
  - Urine odour abnormal [Unknown]
  - Rhinorrhoea [Unknown]
  - Memory impairment [Unknown]
  - Chromaturia [Unknown]
  - Dysuria [Unknown]
  - Micturition urgency [Unknown]
